FAERS Safety Report 22152167 (Version 1)
Quarter: 2023Q1

REPORT INFORMATION
  Report Type: Spontaneous
  Country: US (occurrence: US)
  Receive Date: 20230329
  Receipt Date: 20230329
  Transmission Date: 20230418
  Serious: No
  Sender: FDA-Public Use
  Company Number: US-BION-010789

PATIENT
  Age: 47 Year
  Sex: Female

DRUGS (3)
  1. ALEVE [Suspect]
     Active Substance: NAPROXEN SODIUM
     Indication: Tonsillectomy
     Dosage: 1 CAPSULE
     Route: 048
     Dates: start: 20220510, end: 20220511
  2. LEVOTHYROXINE [Concomitant]
     Active Substance: LEVOTHYROXINE
     Dosage: STRENGTH: 125 MG?1 PER DAY
     Route: 048
     Dates: start: 2002
  3. GABAPENTIN [Concomitant]
     Active Substance: GABAPENTIN
     Dosage: 200MG
     Route: 048
     Dates: start: 2019

REACTIONS (2)
  - Product use in unapproved indication [Not Recovered/Not Resolved]
  - Drug effect less than expected [Not Recovered/Not Resolved]

NARRATIVE: CASE EVENT DATE: 20220510
